FAERS Safety Report 4384283-2 (Version None)
Quarter: 2004Q2

REPORT INFORMATION
  Report Type: 
  Country: None (occurrence: None)
  Receive Date: 20040624
  Receipt Date: 20031219
  Transmission Date: 20050107
  Serious: Yes (Hospitalization)
  Sender: FDA-Public Use
  Company Number: BR-ROCHE-354526

PATIENT
  Age: 26 Year
  Sex: Male
  Weight: 48.5 kg

DRUGS (31)
  1. MYCOPHENOLATE MOFETIL [Suspect]
     Route: 048
     Dates: start: 20030827, end: 20031027
  2. MYCOPHENOLATE MOFETIL [Suspect]
     Route: 048
     Dates: start: 20031028, end: 20031119
  3. MYCOPHENOLATE MOFETIL [Suspect]
     Route: 048
     Dates: start: 20031120
  4. DACLIZUMAB [Suspect]
     Route: 042
     Dates: start: 20030827, end: 20030827
  5. DACLIZUMAB [Suspect]
     Route: 042
     Dates: start: 20030911, end: 20031008
  6. TACROLIMUS (AS COMPARATOR) [Suspect]
     Route: 048
     Dates: start: 20030827, end: 20030904
  7. TACROLIMUS (AS COMPARATOR) [Suspect]
     Route: 048
     Dates: start: 20030905, end: 20030915
  8. TACROLIMUS (AS COMPARATOR) [Suspect]
     Route: 048
     Dates: start: 20030916, end: 20031027
  9. TACROLIMUS (AS COMPARATOR) [Suspect]
     Route: 048
     Dates: start: 20031028, end: 20031105
  10. TACROLIMUS (AS COMPARATOR) [Suspect]
     Route: 048
     Dates: start: 20031106, end: 20031201
  11. TACROLIMUS (AS COMPARATOR) [Suspect]
     Route: 048
     Dates: start: 20031202, end: 20031211
  12. TACROLIMUS (AS COMPARATOR) [Suspect]
     Route: 048
     Dates: start: 20031212, end: 20040512
  13. TACROLIMUS (AS COMPARATOR) [Suspect]
     Route: 048
     Dates: start: 20040513
  14. PREDNISONE [Suspect]
     Route: 048
     Dates: start: 20030909, end: 20030911
  15. PREDNISONE [Suspect]
     Route: 048
     Dates: start: 20030912, end: 20031012
  16. PREDNISONE [Suspect]
     Route: 048
     Dates: start: 20031013, end: 20031201
  17. PREDNISONE [Suspect]
     Route: 048
     Dates: start: 20031202
  18. RANITIDINE [Concomitant]
     Indication: DRUG USE FOR UNKNOWN INDICATION
     Route: 048
     Dates: start: 20030827
  19. OMEPRAZOLE [Concomitant]
     Dosage: FREQUENCY ^MID^.
     Route: 048
     Dates: start: 20030829
  20. NIFEDIPINE [Concomitant]
     Route: 048
     Dates: start: 20030828
  21. PROPRANOLOL [Concomitant]
     Route: 048
     Dates: start: 20030828
  22. CLONIDINE HCL [Concomitant]
     Route: 048
     Dates: start: 20030828
  23. CIPROFLOXACIN [Concomitant]
     Route: 048
     Dates: start: 20030908
  24. MINOXIDIL [Concomitant]
     Dosage: FREQUENCY ^MID^.
     Route: 048
     Dates: start: 20030914
  25. NYSTATINE [Concomitant]
     Route: 048
     Dates: start: 20030828
  26. HYDRALAZINE [Concomitant]
     Route: 048
     Dates: start: 20030912
  27. DIAZEPAM [Concomitant]
     Indication: DRUG USE FOR UNKNOWN INDICATION
     Dosage: FREQUENCY ^MID^.
     Route: 048
     Dates: start: 20030830
  28. METHYLPREDNISOLONE [Suspect]
     Route: 065
     Dates: start: 20030827, end: 20030827
  29. METHYLPREDNISOLONE [Suspect]
     Route: 065
     Dates: start: 20030828, end: 20030828
  30. METHYLPREDNISOLONE [Suspect]
     Route: 065
     Dates: start: 20030829, end: 20030830
  31. METHYLPREDNISOLONE [Suspect]
     Route: 065
     Dates: start: 20030915, end: 20030920

REACTIONS (8)
  - BLOOD CREATININE INCREASED [None]
  - DYSURIA [None]
  - FISTULA [None]
  - GRAFT COMPLICATION [None]
  - PATHOGEN RESISTANCE [None]
  - URINARY TRACT INFECTION [None]
  - URINARY TRACT INFECTION PSEUDOMONAL [None]
  - WOUND SECRETION [None]
